FAERS Safety Report 19197038 (Version 5)
Quarter: 2021Q2

REPORT INFORMATION
  Report Type: Spontaneous
  Country: US (occurrence: US)
  Receive Date: 20210430
  Receipt Date: 20210628
  Transmission Date: 20210717
  Serious: No
  Sender: FDA-Public Use
  Company Number: US-BIOGEN-2021BI00996991

PATIENT
  Age: 64 Year
  Sex: Female

DRUGS (5)
  1. VUMERITY [Suspect]
     Active Substance: DIROXIMEL FUMARATE
     Indication: MULTIPLE SCLEROSIS
     Dosage: TOOK THIS DOSE FOR 7 DAYS
     Route: 048
     Dates: start: 20201106
  2. VUMERITY [Suspect]
     Active Substance: DIROXIMEL FUMARATE
     Route: 065
     Dates: start: 20210401
  3. VUMERITY [Suspect]
     Active Substance: DIROXIMEL FUMARATE
     Dosage: 231MG TWICE DAILY DAY 1?7, RECEIVED SAMPLE STARTER.
     Route: 065
  4. VUMERITY [Suspect]
     Active Substance: DIROXIMEL FUMARATE
     Route: 065
     Dates: start: 20210503
  5. VUMERITY [Suspect]
     Active Substance: DIROXIMEL FUMARATE
     Dosage: STARTED THIS DOSE ON DAY 8

REACTIONS (18)
  - Flushing [Recovered/Resolved]
  - Pain [Recovered/Resolved]
  - Mental impairment [Unknown]
  - Asthenia [Unknown]
  - Memory impairment [Unknown]
  - Gastrooesophageal reflux disease [Unknown]
  - Arthropathy [Not Recovered/Not Resolved]
  - Cough [Unknown]
  - Gastric disorder [Recovered/Resolved]
  - Ligament sprain [Recovered/Resolved]
  - Rhinorrhoea [Recovered/Resolved]
  - Nausea [Unknown]
  - Illness [Unknown]
  - Ear pruritus [Recovered/Resolved]
  - Fatigue [Not Recovered/Not Resolved]
  - Hypertonic bladder [Unknown]
  - Gait disturbance [Not Recovered/Not Resolved]
  - Arthralgia [Recovered/Resolved]

NARRATIVE: CASE EVENT DATE: 20210512
